FAERS Safety Report 8318569-3 (Version None)
Quarter: 2012Q2

REPORT INFORMATION
  Report Type: 
  Country: None (occurrence: None)
  Receive Date: 20120427
  Receipt Date: 20120420
  Transmission Date: 20120825
  Serious: Yes (Hospitalization)
  Sender: FDA-Public Use
  Company Number: US-ALEXION-A201200557

PATIENT
  Sex: Female

DRUGS (9)
  1. FOLIC ACID [Concomitant]
     Indication: PAROXYSMAL NOCTURNAL HAEMOGLOBINURIA
     Dosage: 1 MG, QD
     Route: 048
  2. NEULASTA [Concomitant]
     Dosage: UNK, MONTHLY
  3. RECOMBINANT ERYTHROPOIETIN [Concomitant]
     Dosage: UNK, WITH DIALYSIS
  4. FLU VACCINE [Concomitant]
     Dosage: UNK, YEARLY
  5. LEVOTHYROXINE SODIUM [Concomitant]
     Indication: HYPOTHYROIDISM
     Dosage: 75 ?G, QD
     Route: 048
  6. XOPENEX [Concomitant]
     Dosage: UNK, Q 8HRS, PRN
  7. DANOCRINE [Concomitant]
     Indication: PAROXYSMAL NOCTURNAL HAEMOGLOBINURIA
     Dosage: 200 MG, QD
     Route: 048
  8. SOLIRIS [Suspect]
     Dosage: 900 MG, UNK
     Route: 042
  9. NEPHROCAPS [Concomitant]
     Dosage: UNK, ONE QD
     Route: 048

REACTIONS (2)
  - PNEUMONIA [None]
  - BLOOD LACTIC ACID INCREASED [None]
